FAERS Safety Report 23697537 (Version 3)
Quarter: 2024Q2

REPORT INFORMATION
  Report Type: Spontaneous
  Country: SE (occurrence: SE)
  Receive Date: 20240402
  Receipt Date: 20240503
  Transmission Date: 20240716
  Serious: Yes (Other)
  Sender: FDA-Public Use
  Company Number: SE-AMERICAN REGENT INC-2024001116

PATIENT

DRUGS (3)
  1. FERINJECT [Suspect]
     Active Substance: FERRIC CARBOXYMALTOSE
     Indication: Product used for unknown indication
     Dosage: 1000 MILLIGRAM, 1 IN 1 TOTAL
     Route: 064
     Dates: start: 20240311, end: 20240311
  2. FOLSYRA EVOLAN [Concomitant]
     Indication: Product used for unknown indication
     Dosage: 1 TABLET DAILY (5 MG,1 IN 1 D)
     Route: 064
     Dates: start: 20240229
  3. CYANOCOBALAMIN [Concomitant]
     Active Substance: CYANOCOBALAMIN
     Indication: Product used for unknown indication
     Dosage: 2 TABLETS TWICE DAILY (2 MG, 2 IN 1 D)
     Route: 064
     Dates: start: 20240229

REACTIONS (2)
  - Foetal exposure during pregnancy [Unknown]
  - Bradycardia foetal [Unknown]

NARRATIVE: CASE EVENT DATE: 20240311
